FAERS Safety Report 8776163 (Version 2)
Quarter: 2012Q4

REPORT INFORMATION
  Report Type: 
  Country: GB (occurrence: GB)
  Receive Date: 20120910
  Receipt Date: 20121012
  Transmission Date: 20130627
  Serious: Yes (Other)
  Sender: FDA-Public Use
  Company Number: GB-GLAXOSMITHKLINE-B0826414A

PATIENT
  Age: 63 Year
  Sex: Female

DRUGS (10)
  1. SERETIDE [Suspect]
     Indication: ASTHMA
     Dosage: 1PUFF Twice per day
     Route: 055
  2. BONVIVA [Concomitant]
  3. PREDNISOLONE [Concomitant]
     Indication: LOWER RESPIRATORY TRACT INFECTION
  4. OMEPRAZOLE [Concomitant]
  5. NYSTATIN [Concomitant]
  6. VENTOLIN [Concomitant]
  7. ADCAL D3 [Concomitant]
  8. FUROSEMIDE [Concomitant]
  9. SODIUM HYALURONATE [Concomitant]
  10. GALPSEUD [Concomitant]

REACTIONS (4)
  - Asthma [Not Recovered/Not Resolved]
  - Drug ineffective [Not Recovered/Not Resolved]
  - Oral candidiasis [Not Recovered/Not Resolved]
  - Product quality issue [Unknown]
